FAERS Safety Report 10049534 (Version 1)
Quarter: 2014Q1

REPORT INFORMATION
  Report Type: Spontaneous
  Country: US (occurrence: None)
  Receive Date: 20140331
  Receipt Date: 20140331
  Transmission Date: 20141002
  Serious: Yes (Disabling)
  Sender: FDA-Public Use
  Company Number: None

PATIENT
  Age: 53 Year
  Sex: 0

DRUGS (1)
  1. ZITHROMAX [Suspect]
     Indication: EAR INFECTION
     Dosage: Z PACK
     Route: 048

REACTIONS (5)
  - Chest pain [None]
  - Heart rate irregular [None]
  - Extrasystoles [None]
  - Stress [None]
  - Anxiety [None]
